FAERS Safety Report 4979740-1 (Version None)
Quarter: 2006Q1

REPORT INFORMATION
  Report Type: 
  Country: None (occurrence: None)
  Receive Date: 20060216
  Receipt Date: 20051104
  Transmission Date: 20060701
  Serious: No
  Sender: FDA-Public Use
  Company Number: TPA2005A01425

PATIENT
  Age: 54 Year
  Sex: Female
  Weight: 56.246 kg

DRUGS (3)
  1. ROZEREM [Suspect]
     Indication: INSOMNIA
     Dosage: 8 MG, HS, PER ORAL
     Route: 048
     Dates: start: 20051025, end: 20051030
  2. MELATONIN (MELATONIN) (9 MILLIGRAM) [Concomitant]
  3. ZELNORM (TEGASEROD MALEATE) (6 MILLIGRAM) [Concomitant]

REACTIONS (3)
  - DIZZINESS [None]
  - NAUSEA [None]
  - TREMOR [None]
